FAERS Safety Report 4668633-5 (Version None)
Quarter: 2005Q2

REPORT INFORMATION
  Report Type: 
  Country: None (occurrence: None)
  Receive Date: 20050519
  Receipt Date: 20050507
  Transmission Date: 20051028
  Serious: Yes (Other)
  Sender: FDA-Public Use
  Company Number: 2005045397

PATIENT
  Age: 50 Year
  Sex: Female
  Weight: 68.0396 kg

DRUGS (6)
  1. NEURONTIN [Suspect]
     Indication: NERVE COMPRESSION
     Dosage: 900 MG (300 MG, 3 IN 1 D), ORAL
     Route: 048
     Dates: start: 20030101
  2. ESTRADIOL [Concomitant]
  3. VERAPAMIL [Concomitant]
  4. MOTRIN (IBUPROFEN) [Concomitant]
  5. LORAZEPAM [Concomitant]
  6. FLEXERIL [Concomitant]

REACTIONS (7)
  - BURNING SENSATION [None]
  - CONSTIPATION [None]
  - FEELING ABNORMAL [None]
  - MUSCLE SPASMS [None]
  - PARAESTHESIA [None]
  - PHARMACEUTICAL PRODUCT COMPLAINT [None]
  - POOR QUALITY DRUG ADMINISTERED [None]
